FAERS Safety Report 7203562-4 (Version None)
Quarter: 2010Q4

REPORT INFORMATION
  Report Type: 
  Country: None (occurrence: None)
  Receive Date: 20101230
  Receipt Date: 20101220
  Transmission Date: 20110411
  Serious: Yes (Life-Threatening, Hospitalization)
  Sender: FDA-Public Use
  Company Number: US-KINGPHARMUSA00001-K201001527

PATIENT
  Age: 20 Year
  Sex: Male

DRUGS (5)
  1. SEPTRA [Suspect]
     Indication: TENOSYNOVITIS
     Dosage: UNK
     Route: 048
  2. CEFTRIAXONE [Suspect]
     Indication: TENOSYNOVITIS
     Dosage: 1 DF, SINGLE
  3. DOXYCYCLINE [Suspect]
     Indication: TENOSYNOVITIS
     Dosage: UNK
  4. DOXYCYCLINE [Suspect]
     Dosage: UNK
  5. VANCOMYCIN [Suspect]
     Indication: TENOSYNOVITIS
     Dosage: 1 DF, SINGLE

REACTIONS (21)
  - DERMATITIS EXFOLIATIVE [None]
  - DISSEMINATED INTRAVASCULAR COAGULATION [None]
  - DRUG ERUPTION [None]
  - DRUG RASH WITH EOSINOPHILIA AND SYSTEMIC SYMPTOMS [None]
  - EOSINOPHILIA [None]
  - GENERALISED OEDEMA [None]
  - HUMAN HERPESVIRUS 6 INFECTION [None]
  - LEUKOCYTOSIS [None]
  - LICHENOID KERATOSIS [None]
  - LYMPHADENOPATHY [None]
  - LYMPHOCYTOSIS [None]
  - MALAISE [None]
  - MYALGIA [None]
  - PYREXIA [None]
  - RASH [None]
  - RENAL FAILURE [None]
  - RESPIRATORY FAILURE [None]
  - SKIN EXFOLIATION [None]
  - SPLENIC INFARCTION [None]
  - TRANSAMINASES INCREASED [None]
  - UPPER RESPIRATORY TRACT IRRITATION [None]
